FAERS Safety Report 4569018-2 (Version None)
Quarter: 2005Q1

REPORT INFORMATION
  Report Type: 
  Country: None (occurrence: None)
  Receive Date: 20050203
  Receipt Date: 20050124
  Transmission Date: 20050727
  Serious: Yes (Hospitalization, Other)
  Sender: FDA-Public Use
  Company Number: 200510309JP

PATIENT
  Age: 21 Year
  Sex: Female

DRUGS (8)
  1. KETEK [Suspect]
     Indication: TONSILLITIS
     Route: 048
     Dates: start: 20041227, end: 20041231
  2. MUCOSOLVAN [Concomitant]
     Dosage: DOSE: 3 TABLETS/DAY
     Route: 048
     Dates: start: 20041227, end: 20050105
  3. SELBEX [Concomitant]
     Indication: GASTRITIS
     Dosage: DOSE: 3 CAPSULES/DAY
     Route: 048
     Dates: start: 20041227, end: 20050105
  4. EXACIN [Concomitant]
     Indication: TONSILLITIS
     Route: 042
     Dates: start: 20041227, end: 20050101
  5. BISOLVON [Concomitant]
     Route: 042
     Dates: start: 20041227, end: 20050101
  6. ROCEPHIN [Concomitant]
     Indication: TONSILLITIS
     Route: 042
     Dates: start: 20041229, end: 20050101
  7. PRIMPERAN INJ [Concomitant]
     Indication: GASTRITIS
     Route: 042
     Dates: start: 20041229, end: 20050101
  8. TRANSAMIN [Concomitant]
     Indication: TONSILLITIS
     Dosage: DOSE: 3 TABLETS/DAY
     Route: 048
     Dates: start: 20050101, end: 20050105

REACTIONS (5)
  - FALL [None]
  - HEAD INJURY [None]
  - LOSS OF CONSCIOUSNESS [None]
  - PYREXIA [None]
  - SKULL FRACTURE [None]
